FAERS Safety Report 7425615-8 (Version None)
Quarter: 2011Q2

REPORT INFORMATION
  Report Type: 
  Country: None (occurrence: None)
  Receive Date: 20110420
  Receipt Date: 20110414
  Transmission Date: 20111010
  Serious: Yes (Other)
  Sender: FDA-Public Use
  Company Number: JP-PFIZER INC-2011075694

PATIENT
  Age: 80 Year
  Sex: Female

DRUGS (2)
  1. AROMASIN [Suspect]
     Indication: BREAST CANCER
     Dosage: 25 MG, 1X/DAY
     Route: 048
     Dates: start: 20110218
  2. PACLITAXEL [Suspect]
     Indication: BREAST CANCER
     Dosage: UNK

REACTIONS (2)
  - DYSPNOEA [None]
  - PALPITATIONS [None]
